FAERS Safety Report 4973675-6 (Version None)
Quarter: 2006Q2

REPORT INFORMATION
  Report Type: 
  Country: None (occurrence: None)
  Receive Date: 20060414
  Receipt Date: 20051004
  Transmission Date: 20061013
  Serious: Yes (Hospitalization)
  Sender: FDA-Public Use
  Company Number: US-MERCK-0510USA03487

PATIENT
  Age: 72 Year
  Sex: Male
  Weight: 84 kg

DRUGS (5)
  1. VIOXX [Suspect]
     Indication: ARTHRALGIA
     Route: 048
     Dates: start: 19990101, end: 20041001
  2. GLUCOPHAGE [Concomitant]
     Route: 065
  3. ZOCOR [Concomitant]
     Route: 065
  4. ACCUPRIL [Concomitant]
     Route: 065
  5. NORVASC [Concomitant]
     Route: 065

REACTIONS (13)
  - BASAL CELL CARCINOMA [None]
  - BENIGN PROSTATIC HYPERPLASIA [None]
  - CARDIOVASCULAR DISORDER [None]
  - CAROTID ARTERY STENOSIS [None]
  - CEREBRAL INFARCTION [None]
  - CEREBROVASCULAR DISORDER [None]
  - RIB FRACTURE [None]
  - ROTATOR CUFF SYNDROME [None]
  - SKIN LESION [None]
  - THROMBOSIS [None]
  - URINARY RETENTION [None]
  - UROSEPSIS [None]
  - VENTRICULAR HYPERTROPHY [None]
